FAERS Safety Report 5920122-3 (Version None)
Quarter: 2008Q4

REPORT INFORMATION
  Report Type: 
  Country: None (occurrence: None)
  Receive Date: 20081016
  Receipt Date: 20081001
  Transmission Date: 20090506
  Serious: Yes (Other)
  Sender: FDA-Public Use
  Company Number: US-BAYER-US-SHR-04-021487

PATIENT
  Age: 35 Year
  Sex: Female

DRUGS (7)
  1. BETASERON [Suspect]
     Indication: MULTIPLE SCLEROSIS
     Dosage: TOTAL DAILY DOSE: 8 MIU
     Route: 058
     Dates: end: 20040209
  2. DILANTIN [Concomitant]
     Indication: CONVULSION
  3. ELAVIL [Concomitant]
     Indication: CONVULSION
  4. TRILEPTAL [Concomitant]
     Indication: CONVULSION
  5. ZOLOFT [Concomitant]
  6. CELEBREX [Concomitant]
  7. ACIPHEX [Concomitant]

REACTIONS (10)
  - INJECTION SITE DRYNESS [None]
  - INJECTION SITE NECROSIS [None]
  - INJECTION SITE PAIN [None]
  - PSEUDOMONAS INFECTION [None]
  - SCAB [None]
  - STAPHYLOCOCCAL INFECTION [None]
  - TOXIC EPIDERMAL NECROLYSIS [None]
  - WOUND [None]
  - WOUND COMPLICATION [None]
  - WOUND SECRETION [None]
